FAERS Safety Report 4951441-5 (Version None)
Quarter: 2006Q1

REPORT INFORMATION
  Report Type: 
  Country: None (occurrence: None)
  Receive Date: 20060317
  Receipt Date: 20060310
  Transmission Date: 20060701
  Serious: Yes (Other)
  Sender: FDA-Public Use
  Company Number: 2006030810

PATIENT
  Age: 60 Year
  Sex: Female
  Weight: 81.6475 kg

DRUGS (7)
  1. NEURONTIN [Suspect]
     Indication: CONVULSION
     Dosage: 300 MG
  2. NEURONTIN [Suspect]
     Indication: NEUROPATHY
     Dosage: 300 MG
  3. LYRICA [Suspect]
     Indication: CONVULSION
     Dosage: 300 MG (150 MG, 2 IN 1 D)
     Dates: start: 20051101, end: 20060101
  4. KEPPRA [Suspect]
     Indication: CONVULSION
     Dosage: 900 MG (300 MG, 3 IN 1 D)
     Dates: start: 20060101, end: 20060101
  5. EVISTA [Concomitant]
  6. DIOVAN [Concomitant]
  7. ZIAC (BISOPROLOL) [Concomitant]

REACTIONS (12)
  - ARTHRITIS [None]
  - BALANCE DISORDER [None]
  - CONDITION AGGRAVATED [None]
  - CONVULSION [None]
  - DISTURBANCE IN ATTENTION [None]
  - DIZZINESS [None]
  - HYPERPHAGIA [None]
  - LOSS OF CONSCIOUSNESS [None]
  - MENTAL DISORDER [None]
  - MIGRAINE [None]
  - NEUROPATHY [None]
  - WEIGHT INCREASED [None]
